FAERS Safety Report 9789182 (Version 1)
Quarter: 2013Q4

REPORT INFORMATION
  Report Type: Spontaneous
  Country: US (occurrence: US)
  Receive Date: 20131230
  Receipt Date: 20131230
  Transmission Date: 20140711
  Serious: Yes (Hospitalization)
  Sender: FDA-Public Use
  Company Number: US-GILEAD-2013-0090928

PATIENT
  Age: 78 Year
  Sex: Male

DRUGS (4)
  1. LETAIRIS [Suspect]
     Indication: PRODUCT USED FOR UNKNOWN INDICATION
     Dosage: 10 MG, UNK
     Dates: start: 20130329
  2. ADCIRCA [Concomitant]
  3. LASIX                              /00032601/ [Concomitant]
  4. REMODULIN [Concomitant]

REACTIONS (3)
  - Fluid overload [Recovered/Resolved]
  - Dyspnoea [Unknown]
  - Fatigue [Unknown]
